FAERS Safety Report 7561351-5 (Version None)
Quarter: 2011Q2

REPORT INFORMATION
  Report Type: 
  Country: None (occurrence: None)
  Receive Date: 20110621
  Receipt Date: 20101221
  Transmission Date: 20111010
  Serious: No
  Sender: FDA-Public Use
  Company Number: US-ASTRAZENECA-2010SE60223

PATIENT
  Age: 49 Year
  Sex: Female
  Weight: 54.4 kg

DRUGS (1)
  1. PULMICORT FLEXHALER [Suspect]
     Indication: ASTHMA
     Dosage: BID, AS REQUIRED
     Route: 055
     Dates: start: 20100801

REACTIONS (4)
  - WHEEZING [None]
  - DYSPNOEA [None]
  - DRUG INEFFECTIVE [None]
  - DYSPHONIA [None]
